FAERS Safety Report 9128898 (Version 1)
Quarter: 2013Q1

REPORT INFORMATION
  Report Type: Spontaneous
  Country: US (occurrence: US)
  Receive Date: 20130228
  Receipt Date: 20130228
  Transmission Date: 20140127
  Serious: Yes (Hospitalization)
  Sender: FDA-Public Use
  Company Number: US-GLAXOSMITHKLINE-A0939716A

PATIENT
  Age: 33 Year
  Sex: Female
  Weight: 75 kg

DRUGS (11)
  1. BENLYSTA [Suspect]
     Indication: SYSTEMIC LUPUS ERYTHEMATOSUS
     Dosage: 10MGK EVERY TWO WEEKS
     Route: 042
     Dates: start: 20110525, end: 20110620
  2. ZYRTEC [Concomitant]
     Dosage: 10MG PER DAY
     Dates: start: 20110708, end: 20110906
  3. INDOMETHACIN [Concomitant]
     Dosage: 25MG PER DAY
     Dates: start: 20110708, end: 20110720
  4. HYDROXYZINE [Concomitant]
     Dosage: 20MG PER DAY
     Dates: start: 20110708, end: 20110906
  5. ESZOPICLONE [Concomitant]
     Dates: end: 20110906
  6. OMEPRAZOLE [Concomitant]
     Dosage: 20MG PER DAY
     Dates: end: 20110906
  7. TRAMADOL [Concomitant]
     Dates: end: 20110906
  8. VITAMIN D [Concomitant]
     Dosage: 1000IU PER DAY
     Dates: end: 20110906
  9. AZATHIOPRINE [Concomitant]
     Indication: SYSTEMIC LUPUS ERYTHEMATOSUS
     Route: 048
     Dates: start: 201207
  10. HYDROXYCHLOROQUINE [Concomitant]
     Indication: SYSTEMIC LUPUS ERYTHEMATOSUS
     Route: 048
     Dates: start: 201207
  11. ACETAMINOPHEN [Concomitant]
     Indication: SYSTEMIC LUPUS ERYTHEMATOSUS
     Route: 048
     Dates: start: 201207

REACTIONS (9)
  - Endocarditis [Recovering/Resolving]
  - Dehydration [Recovering/Resolving]
  - Sepsis [Recovered/Resolved]
  - Pyrexia [Recovering/Resolving]
  - Chills [Recovering/Resolving]
  - Oropharyngeal pain [Recovering/Resolving]
  - Arthralgia [Recovering/Resolving]
  - Nausea [Recovering/Resolving]
  - Diarrhoea [Recovering/Resolving]
